FAERS Safety Report 9929064 (Version 3)
Quarter: 2014Q1

REPORT INFORMATION
  Report Type: Spontaneous
  Country: US (occurrence: US)
  Receive Date: 20140227
  Receipt Date: 20140313
  Transmission Date: 20141002
  Serious: Yes (Hospitalization, Other)
  Sender: FDA-Public Use
  Company Number: US-009507513-1103USA01244

PATIENT
  Sex: Female
  Weight: 82.99 kg

DRUGS (9)
  1. FOSAMAX [Suspect]
     Indication: OSTEOPOROSIS
     Dosage: 70 MG, QW
     Route: 048
     Dates: start: 20020617, end: 201005
  2. FOSAMAX [Suspect]
     Indication: OSTEOPOROSIS
     Dosage: 70 MG, UNK
     Route: 048
     Dates: start: 20080714, end: 20100223
  3. MK-9278 [Concomitant]
     Dosage: UNK UNK, QD
  4. CALCIUM (UNSPECIFIED) [Concomitant]
     Dosage: 1000 U, QD
  5. VITAMIN D (UNSPECIFIED) [Concomitant]
     Dosage: UNK UNK, QD
  6. LIPITOR [Concomitant]
     Dosage: 20 MG, HS
  7. SYNTHROID [Concomitant]
     Dosage: 150 ?G, UNK
  8. MK-0152 [Concomitant]
     Dosage: 25 MG, QD
  9. ALENDRONATE SODIUM [Suspect]
     Dosage: 70 MG, UNK

REACTIONS (35)
  - Femur fracture [Recovered/Resolved with Sequelae]
  - Open reduction of fracture [Unknown]
  - Atelectasis [Unknown]
  - Arteriosclerosis [Unknown]
  - Cardiomegaly [Unknown]
  - Lung infiltration [Unknown]
  - Radius fracture [Recovered/Resolved]
  - Fall [Unknown]
  - Aortic calcification [Unknown]
  - Interstitial lung disease [Unknown]
  - Spinal osteoarthritis [Unknown]
  - Renal failure acute [Unknown]
  - Dehydration [Unknown]
  - Hypokalaemia [Unknown]
  - Lung disorder [Unknown]
  - Systemic inflammatory response syndrome [Unknown]
  - Faecaloma [Unknown]
  - Leukocytosis [Recovering/Resolving]
  - Urinary retention [Unknown]
  - Urinary tract infection [Unknown]
  - Pyrexia [Recovered/Resolved]
  - Nausea [Unknown]
  - Vomiting [Unknown]
  - Impaired healing [Unknown]
  - Bursitis [Recovering/Resolving]
  - Hypertension [Unknown]
  - Blood cholesterol increased [Unknown]
  - Cataract [Unknown]
  - Hepatic steatosis [Unknown]
  - Diabetic retinopathy [Unknown]
  - Fall [Unknown]
  - Hydronephrosis [Unknown]
  - Diabetes mellitus [Unknown]
  - Bursitis [Unknown]
  - Osteopenia [Unknown]
